FAERS Safety Report 4797835-2 (Version None)
Quarter: 2005Q3

REPORT INFORMATION
  Report Type: 
  Country: None (occurrence: None)
  Receive Date: 20050929
  Receipt Date: 20050629
  Transmission Date: 20060218
  Serious: No
  Sender: FDA-Public Use
  Company Number: 05P-163-0304520-00

PATIENT
  Age: 76 Year
  Sex: Male
  Weight: 85.2762 kg

DRUGS (10)
  1. HUMIRA [Suspect]
     Indication: RHEUMATOID ARTHRITIS
     Dosage: 40 MG, 1 IN 2 WK, SUBCUTANEOUS
     Route: 058
     Dates: start: 20030101, end: 20050101
  2. CLOPIDOGREL BISULFATE [Concomitant]
  3. CARVEDILOL [Concomitant]
  4. ATORVASTATIN CALCIUM [Concomitant]
  5. ACETYLSALICYLIC ACID SRT [Concomitant]
  6. IRON [Concomitant]
  7. LOSARTAN POTASSIUM [Concomitant]
  8. FUROSEMIDE [Concomitant]
  9. POTASSIUM [Concomitant]
  10. LANSOPRAZOLE [Concomitant]

REACTIONS (1)
  - DRUG INEFFECTIVE [None]
